FAERS Safety Report 19684915 (Version 1)
Quarter: 2021Q3

REPORT INFORMATION
  Report Type: Spontaneous
  Country: CA (occurrence: CA)
  Receive Date: 20210811
  Receipt Date: 20210811
  Transmission Date: 20211014
  Serious: Yes (Life-Threatening, Other)
  Sender: FDA-Public Use
  Company Number: CA-ACCORD-235122

PATIENT
  Age: 31 Year
  Sex: Male
  Weight: 81.65 kg

DRUGS (1)
  1. ESCITALOPRAM [Suspect]
     Active Substance: ESCITALOPRAM OXALATE
     Indication: ANXIETY
     Dosage: 1 EVERY 1 DAYS
     Route: 048

REACTIONS (3)
  - Palpitations [Unknown]
  - Pain in extremity [Unknown]
  - Dizziness [Unknown]
